FAERS Safety Report 5294693-7 (Version None)
Quarter: 2007Q2

REPORT INFORMATION
  Report Type: 
  Country: None (occurrence: None)
  Receive Date: 20070409
  Receipt Date: 20070409
  Transmission Date: 20071010
  Serious: No
  Sender: FDA-Public Use
  Company Number: None

PATIENT
  Sex: Female

DRUGS (1)
  1. SERTRALINE [Suspect]
     Dosage: 150MG  DAILY  PO
     Route: 048
     Dates: start: 20040101, end: 20070301

REACTIONS (2)
  - STOMATITIS [None]
  - TONGUE DISORDER [None]
